FAERS Safety Report 11198337 (Version 2)
Quarter: 2016Q1

REPORT INFORMATION
  Report Type: Spontaneous
  Country: TR (occurrence: TR)
  Receive Date: 20150618
  Receipt Date: 20160206
  Transmission Date: 20160525
  Serious: Yes (Death, Hospitalization, Other)
  Sender: FDA-Public Use
  Company Number: TR-MACLEODS PHARMACEUTICALS US LTD-MAC2015001808

PATIENT

DRUGS (2)
  1. ETHANOL [Suspect]
     Active Substance: ALCOHOL
     Indication: PRODUCT USED FOR UNKNOWN INDICATION
     Route: 065
  2. SILDENAFIL. [Suspect]
     Active Substance: SILDENAFIL
     Indication: PRODUCT USED FOR UNKNOWN INDICATION
     Dosage: 50 MG
     Route: 065

REACTIONS (5)
  - Cerebral haemorrhage [Fatal]
  - Drug interaction [Fatal]
  - Prescription drug used without a prescription [Fatal]
  - Subarachnoid haemorrhage [Fatal]
  - Loss of consciousness [Fatal]
